FAERS Safety Report 13122382 (Version 1)
Quarter: 2017Q1

REPORT INFORMATION
  Report Type: Spontaneous
  Country: JP (occurrence: JP)
  Receive Date: 20170117
  Receipt Date: 20170117
  Transmission Date: 20170428
  Serious: Yes (Other)
  Sender: FDA-Public Use
  Company Number: JP-PFIZER INC-2017017933

PATIENT
  Age: 75 Year
  Sex: Male

DRUGS (1)
  1. ZYVOX [Suspect]
     Active Substance: LINEZOLID

REACTIONS (1)
  - Hypokalaemia [Unknown]
